FAERS Safety Report 22653507 (Version 1)
Quarter: 2023Q2

REPORT INFORMATION
  Report Type: Spontaneous
  Country: US (occurrence: None)
  Receive Date: 20230627
  Receipt Date: 20230627
  Transmission Date: 20230722
  Serious: Yes (Death)
  Sender: FDA-Public Use
  Company Number: None

PATIENT
  Sex: Female

DRUGS (1)
  1. ZARXIO [Suspect]
     Active Substance: FILGRASTIM-SNDZ
     Indication: Rectosigmoid cancer
     Dosage: OTHER STRENGTH : 480/0.8 UG/ML;?OTHER QUANTITY : 480/0.8 UG/ML;?OTHER FREQUENCY : D2,3,9,10,16,17,23
     Route: 058
     Dates: start: 20230606

REACTIONS (1)
  - Death [None]
